FAERS Safety Report 8330221-7 (Version None)
Quarter: 2012Q2

REPORT INFORMATION
  Report Type: 
  Country: None (occurrence: None)
  Receive Date: 20120502
  Receipt Date: 20120425
  Transmission Date: 20120825
  Serious: Yes (Other)
  Sender: FDA-Public Use
  Company Number: US-TEVA-335166USA

PATIENT
  Sex: Female

DRUGS (5)
  1. VALSARTAN [Concomitant]
     Indication: BLOOD PRESSURE
  2. ALBUTEROL SULFATE AUTOHALER [Concomitant]
  3. HYDROCHLOROTHIAZIDE [Concomitant]
  4. PROAIR HFA [Suspect]
     Indication: CHRONIC OBSTRUCTIVE PULMONARY DISEASE
     Dosage: PRN
  5. BUDESONIDE W/FORMOTEROL FUMARATE [Concomitant]
     Indication: ASTHMA

REACTIONS (2)
  - CHOKING [None]
  - CHEST PAIN [None]
